FAERS Safety Report 17126276 (Version 1)
Quarter: 2019Q4

REPORT INFORMATION
  Report Type: Report from Study
  Country: None (occurrence: DO)
  Receive Date: 20191209
  Receipt Date: 20191209
  Transmission Date: 20200122
  Serious: Yes (Other)
  Sender: FDA-Public Use
  Company Number: DO-ABBVIE-19K-279-3186397-00

PATIENT
  Age: 39 Year
  Sex: Female

DRUGS (3)
  1. OXIVIT [Concomitant]
     Indication: THYROID MASS
  2. OXIVIT [Concomitant]
     Indication: BREAST CYST
     Route: 048
     Dates: start: 20191203
  3. HUMIRA [Suspect]
     Active Substance: ADALIMUMAB
     Indication: RHEUMATOID ARTHRITIS
     Route: 058
     Dates: start: 20150603

REACTIONS (3)
  - Benign breast neoplasm [Recovering/Resolving]
  - Thyroid mass [Recovering/Resolving]
  - Influenza [Recovering/Resolving]

NARRATIVE: CASE EVENT DATE: 20191203
